FAERS Safety Report 4537127-X (Version None)
Quarter: 2004Q4

REPORT INFORMATION
  Report Type: 
  Country: None (occurrence: None)
  Receive Date: 20041223
  Receipt Date: 20041103
  Transmission Date: 20050328
  Serious: Yes (Death, Life-Threatening, Hospitalization)
  Sender: FDA-Public Use
  Company Number: FR-AMGEN-UK098084

PATIENT
  Sex: Female

DRUGS (3)
  1. AMG 099073 [Suspect]
     Indication: PARATHYROID TUMOUR MALIGNANT
     Route: 048
     Dates: start: 20041013, end: 20041101
  2. METOCLOPRAMIDE [Concomitant]
     Dates: start: 20041021
  3. DAFALGAN [Concomitant]
     Dates: start: 20041013, end: 20041021

REACTIONS (22)
  - ARTERIAL THROMBOSIS LIMB [None]
  - ASTHENIA [None]
  - CARDIAC ARREST [None]
  - CARDIO-RESPIRATORY ARREST [None]
  - CATHETER RELATED COMPLICATION [None]
  - CATHETER RELATED INFECTION [None]
  - DISSEMINATED INTRAVASCULAR COAGULATION [None]
  - GASTROINTESTINAL HAEMORRHAGE [None]
  - GENERAL PHYSICAL HEALTH DETERIORATION [None]
  - HAEMODIALYSIS [None]
  - HAEMOTHORAX [None]
  - HYPERCALCAEMIA [None]
  - HYPOKALAEMIA [None]
  - IATROGENIC INJURY [None]
  - NAUSEA [None]
  - NEOPLASM GROWTH ACCELERATED [None]
  - PARAESTHESIA [None]
  - PNEUMONIA [None]
  - SEPTIC SHOCK [None]
  - SHOCK HAEMORRHAGIC [None]
  - STAPHYLOCOCCAL INFECTION [None]
  - VOMITING [None]
